FAERS Safety Report 7132672-5 (Version None)
Quarter: 2010Q4

REPORT INFORMATION
  Report Type: 
  Country: None (occurrence: None)
  Receive Date: 20101202
  Receipt Date: 20101124
  Transmission Date: 20110411
  Serious: Yes (Hospitalization)
  Sender: FDA-Public Use
  Company Number: US-JNJFOC-20101108207

PATIENT
  Sex: Male

DRUGS (19)
  1. RAZADYNE [Suspect]
     Indication: PRODUCT USED FOR UNKNOWN INDICATION
     Route: 065
  2. GALANTAMINE HYDROBROMIDE [Suspect]
     Indication: PRODUCT USED FOR UNKNOWN INDICATION
     Route: 065
  3. APIXABAN [Suspect]
     Indication: THROMBOSIS PROPHYLAXIS
     Route: 048
  4. APIXABAN [Suspect]
     Route: 048
  5. PLACEBO [Suspect]
     Indication: THROMBOSIS PROPHYLAXIS
     Route: 048
  6. PLACEBO [Suspect]
     Route: 048
  7. SYMBICORT [Suspect]
     Indication: PRODUCT USED FOR UNKNOWN INDICATION
     Route: 065
  8. ASPIRIN [Concomitant]
     Route: 065
  9. CLOPIDOGREL BISULFATE [Concomitant]
     Route: 065
  10. LIPITOR [Concomitant]
     Route: 065
  11. RAMIPRIL [Concomitant]
     Route: 065
  12. SOTALOL [Concomitant]
     Route: 065
  13. PANTOPRAZOLE [Concomitant]
     Route: 065
  14. VESICARE [Concomitant]
     Route: 065
  15. PROTONIX [Concomitant]
     Route: 065
  16. ALTACE [Concomitant]
     Route: 065
  17. ACYCLOVIR SODIUM [Concomitant]
     Route: 065
  18. MEGACE [Concomitant]
     Route: 065
  19. RANEXA [Concomitant]
     Route: 065

REACTIONS (3)
  - HICCUPS [None]
  - OROPHARYNGEAL PAIN [None]
  - TREMOR [None]
